FAERS Safety Report 7904861-0 (Version None)
Quarter: 2011Q4

REPORT INFORMATION
  Report Type: 
  Country: None (occurrence: None)
  Receive Date: 20111109
  Receipt Date: 20111028
  Transmission Date: 20120403
  Serious: Yes (Hospitalization, Other)
  Sender: FDA-Public Use
  Company Number: PHHY2011US96926

PATIENT
  Sex: Female

DRUGS (3)
  1. GLEEVEC [Suspect]
     Indication: SYSTEMIC SCLEROSIS
     Dosage: 100 MG, UNK
     Route: 048
  2. GLEEVEC [Suspect]
     Dosage: 100 MG, (INCREASED BY 100 MG EVERY 2 WEEKS
     Route: 048
  3. GLEEVEC [Suspect]
     Dosage: 600 MG PER DAY
     Route: 048

REACTIONS (7)
  - ANAEMIA [None]
  - MUSCULAR WEAKNESS [None]
  - GASTRIC ANTRAL VASCULAR ECTASIA [None]
  - BLOOD CREATINE PHOSPHOKINASE INCREASED [None]
  - SCLERODERMA [None]
  - MYOPATHY [None]
  - FATIGUE [None]
